FAERS Safety Report 7274248-5 (Version None)
Quarter: 2011Q1

REPORT INFORMATION
  Report Type: 
  Country: None (occurrence: None)
  Receive Date: 20110204
  Receipt Date: 20110126
  Transmission Date: 20110831
  Serious: No
  Sender: FDA-Public Use
  Company Number: US-BIOGENIDEC-2011BI003686

PATIENT
  Age: 60 Year
  Sex: Female

DRUGS (1)
  1. AVONEX [Suspect]
     Indication: MULTIPLE SCLEROSIS
     Route: 030
     Dates: start: 19990915

REACTIONS (6)
  - GINGIVAL PAIN [None]
  - PRURITUS [None]
  - URTICARIA [None]
  - STOMATITIS [None]
  - ALLERGY TO ANIMAL [None]
  - PHARYNGEAL OEDEMA [None]
